FAERS Safety Report 8764534 (Version 3)
Quarter: 2012Q4

REPORT INFORMATION
  Report Type: Report from Study
  Country: ES (occurrence: ES)
  Receive Date: 20120831
  Receipt Date: 20121228
  Transmission Date: 20130627
  Serious: Yes (Hospitalization)
  Sender: FDA-Public Use
  Company Number: ES-BAXTER-2012BAX015319

PATIENT
  Age: 67 Year
  Sex: Male
  Weight: 57 kg

DRUGS (34)
  1. GENOXAL [Suspect]
     Indication: DIFFUSE LARGE B-CELL LYMPHOMA
     Route: 042
     Dates: start: 20120607
  2. DOXORUBICIN [Suspect]
     Indication: DIFFUSE LARGE B-CELL LYMPHOMA
     Route: 042
     Dates: start: 20120607
  3. VINCRISTINE [Suspect]
     Indication: DIFFUSE LARGE B-CELL LYMPHOMA
     Route: 040
     Dates: start: 20120607
  4. PREDNISONE [Suspect]
     Indication: DIFFUSE LARGE B-CELL LYMPHOMA
     Route: 048
     Dates: start: 20120607
  5. PREDNISONE [Suspect]
     Route: 048
     Dates: start: 20120611
  6. PARACETAMOL [Concomitant]
     Indication: INFUSION RELATED REACTION
     Route: 065
     Dates: start: 20120607, end: 20120607
  7. PARACETAMOL [Concomitant]
     Indication: FEVER
     Route: 065
     Dates: start: 20120615, end: 20120617
  8. ACTOCORTIN [Concomitant]
     Indication: INFUSION RELATED REACTION
     Route: 065
     Dates: start: 20120607, end: 20120607
  9. ONDANSETRON [Concomitant]
     Indication: NAUSEA
     Route: 065
     Dates: start: 20120607, end: 20120607
  10. DEXCLORPHENIRAMINE MALEATO [Concomitant]
     Indication: INFUSION RELATED REACTION
     Route: 065
  11. LEVOFLOXACIN [Concomitant]
     Indication: INFECTION
     Route: 065
     Dates: start: 20120615, end: 20120615
  12. LEVOFLOXACIN [Concomitant]
     Route: 065
     Dates: start: 20120716, end: 20120726
  13. PIPERACILLIN SODIUM [Concomitant]
     Indication: INFECTION
     Route: 065
     Dates: start: 20120616, end: 20120620
  14. TAZOBACTAM SODIUM [Concomitant]
     Indication: INFECTION
     Route: 065
     Dates: start: 20120616, end: 20120620
  15. NEUPOGEN [Concomitant]
     Indication: NEUTROPENIA
     Route: 065
     Dates: start: 20120616, end: 20120617
  16. NEUPOGEN [Concomitant]
     Route: 065
     Dates: start: 20120706, end: 20120708
  17. METOCLOPRAMIDE [Concomitant]
     Indication: VOMITING
     Route: 065
     Dates: start: 20120614, end: 20120625
  18. PANTOPRAZOLE [Concomitant]
     Indication: DRUG USE FOR UNKNOWN INDICATION
     Route: 065
     Dates: start: 20120614, end: 20120628
  19. FLUCONAZOLE [Concomitant]
     Indication: ESOPHAGITIS
     Route: 065
     Dates: start: 20120619, end: 20120725
  20. FLUCONAZOLE [Concomitant]
     Indication: CANDIDAL INFECTION NOS
  21. OMEPRAZOLE [Concomitant]
     Indication: GASTRIC ULCER PROPHYLAXIS
     Route: 065
     Dates: start: 20120629, end: 20120707
  22. AUGMENTINE [Concomitant]
     Indication: ASPIRATION PNEUMONIA
     Route: 065
     Dates: start: 20120701, end: 20120705
  23. MEROPENEM [Concomitant]
     Indication: ASPIRATION PNEUMONIA
     Route: 065
     Dates: start: 20120705, end: 20120715
  24. VITAMIN K [Concomitant]
     Indication: DRUG USE FOR UNKNOWN INDICATION
     Route: 065
     Dates: start: 20120705, end: 20120712
  25. FUROSEMIDE [Concomitant]
     Indication: DRUG USE FOR UNKNOWN INDICATION
     Route: 065
     Dates: start: 20120722, end: 20120722
  26. LORAZEPAM [Concomitant]
     Indication: PROPHYLAXIS
     Route: 065
     Dates: start: 20120619, end: 20120620
  27. LORAZEPAM [Concomitant]
     Route: 065
     Dates: start: 20120626
  28. BROMAZEPAM [Concomitant]
     Indication: DRUG USE FOR UNKNOWN INDICATION
     Route: 065
     Dates: start: 20120615, end: 20120618
  29. BROMAZEPAM [Concomitant]
     Route: 065
     Dates: start: 20120621, end: 20120625
  30. IPRATROPIUM BROMIDE [Concomitant]
     Indication: DRUG USE FOR UNKNOWN INDICATION
     Route: 065
     Dates: start: 20120711, end: 20120813
  31. CLARITHROMYCIN [Concomitant]
     Indication: ASPIRATION PNEUMONIA
     Route: 065
     Dates: start: 20120630, end: 20120707
  32. SODIUM LAURYL SULFATE [Concomitant]
     Indication: CONSTIPATION
     Route: 065
     Dates: start: 20120703, end: 20120705
  33. SALBUTAMOL [Concomitant]
     Indication: DRUG USE FOR UNKNOWN INDICATION
     Route: 065
     Dates: start: 20120722, end: 20120726
  34. RED BLOOD CELLS [Concomitant]
     Indication: DRUG USE FOR UNKNOWN INDICATION
     Route: 065

REACTIONS (2)
  - Acquired tracheo-oesophageal fistula [Recovered/Resolved]
  - Dysphagia [Recovered/Resolved]
